FAERS Safety Report 9939795 (Version 1)
Quarter: 2014Q1

REPORT INFORMATION
  Report Type: Spontaneous
  Country: US (occurrence: US)
  Receive Date: 20140303
  Receipt Date: 20140303
  Transmission Date: 20141002
  Serious: No
  Sender: FDA-Public Use
  Company Number: US-ABBVIE-13P-163-1033413-00

PATIENT
  Age: 24 Year
  Sex: Female
  Weight: 61.29 kg

DRUGS (6)
  1. HUMIRA [Suspect]
     Indication: CROHN^S DISEASE
     Route: 058
     Dates: start: 2009
  2. PENTASA [Concomitant]
     Indication: CROHN^S DISEASE
  3. 6-MP [Concomitant]
     Indication: CROHN^S DISEASE
  4. KEPPRA [Concomitant]
     Indication: CONVULSION
  5. VIMPAT [Concomitant]
     Indication: CONVULSION
  6. FOLIC ACID [Concomitant]
     Indication: SUPPLEMENTATION THERAPY

REACTIONS (4)
  - Device malfunction [Unknown]
  - Rash papular [Recovered/Resolved]
  - Injection site pain [Not Recovered/Not Resolved]
  - Incorrect dose administered [Unknown]
